FAERS Safety Report 5064238-5 (Version None)
Quarter: 2006Q3

REPORT INFORMATION
  Report Type: 
  Country: None (occurrence: None)
  Receive Date: 20060726
  Receipt Date: 20060726
  Transmission Date: 20061208
  Serious: Yes (Hospitalization)
  Sender: FDA-Public Use
  Company Number: None

PATIENT
  Age: 68 Year
  Sex: Male
  Weight: 84 kg

DRUGS (13)
  1. LEPIRUDIN [Suspect]
     Indication: THROMBOSIS PROPHYLAXIS
     Dosage: CONTIN INFUSION IV DRIP
     Route: 041
     Dates: start: 20060325, end: 20060331
  2. ACETAMINOPHEN ALCOHOL FREE [Concomitant]
  3. ENTERAL TUBE [Concomitant]
  4. ALBUTEROL SULFATE AND IPRATROPIUM BROMIDE [Concomitant]
  5. BISACODYL [Concomitant]
  6. CALCIUM CARBONATE [Concomitant]
  7. CASPOFUNGIN [Concomitant]
  8. DEXTROSE [Concomitant]
  9. DILTIAZEM HCL [Concomitant]
  10. DOCUSATE [Concomitant]
  11. FENTANYL [Concomitant]
  12. INSULIN [Concomitant]
  13. NACL [Concomitant]

REACTIONS (2)
  - CEREBRAL HAEMORRHAGE [None]
  - PUPIL FIXED [None]
